FAERS Safety Report 13387586 (Version 2)
Quarter: 2017Q2

REPORT INFORMATION
  Report Type: Spontaneous
  Country: US (occurrence: US)
  Receive Date: 20170330
  Receipt Date: 20170421
  Transmission Date: 20170830
  Serious: Yes (Life-Threatening, Other)
  Sender: FDA-Public Use
  Company Number: US-009507513-1703USA011259

PATIENT
  Age: 20 Year
  Sex: Female
  Weight: 99.05 kg

DRUGS (1)
  1. NUVARING [Suspect]
     Active Substance: ETHINYL ESTRADIOL\ETONOGESTREL
     Indication: CONTRACEPTION
     Dosage: 1 RING; 3 WEEKS/MONTH
     Route: 067
     Dates: start: 201701, end: 20170319

REACTIONS (2)
  - Pleuritic pain [Recovering/Resolving]
  - Pulmonary embolism [Recovered/Resolved]

NARRATIVE: CASE EVENT DATE: 20170312
